FAERS Safety Report 9989044 (Version 2)
Quarter: 2014Q1

REPORT INFORMATION
  Report Type: Report from Study
  Country: PR (occurrence: PR)
  Receive Date: 20140310
  Receipt Date: 20140310
  Transmission Date: 20141002
  Serious: No
  Sender: FDA-Public Use
  Company Number: PR-ABBVIE-12P-131-0990631-00

PATIENT
  Age: 42 Year
  Sex: Female
  Weight: 88.98 kg

DRUGS (8)
  1. HUMIRA [Suspect]
     Indication: RHEUMATOID ARTHRITIS
     Route: 050
     Dates: start: 201206, end: 201210
  2. HUMIRA [Suspect]
     Indication: PSORIASIS
     Route: 050
     Dates: start: 201210, end: 201211
  3. HUMIRA [Suspect]
     Route: 050
     Dates: start: 201212
  4. METHOTREXATE [Concomitant]
     Indication: RHEUMATOID ARTHRITIS
     Dosage: 2 TABS ON FRIDAYS AND 2 TABS ON SATURDAYS
     Route: 048
     Dates: start: 201112
  5. FOLIC ACID [Concomitant]
     Indication: VITAMIN SUPPLEMENTATION
     Dates: start: 201212
  6. CALTRATE + D [Concomitant]
     Indication: VITAMIN D DEFICIENCY
     Dates: start: 201301
  7. TRAMADOL [Concomitant]
     Indication: RHEUMATOID ARTHRITIS
     Dosage: AS REQUIRED
     Dates: start: 201112
  8. SYNTHROID [Concomitant]
     Indication: THYROID DISORDER
     Route: 048
     Dates: start: 1993

REACTIONS (4)
  - Folate deficiency [Not Recovered/Not Resolved]
  - Cutaneous lupus erythematosus [Not Recovered/Not Resolved]
  - Fungal infection [Recovered/Resolved]
  - Systemic lupus erythematosus [Unknown]
